FAERS Safety Report 14979952 (Version 1)
Quarter: 2018Q2

REPORT INFORMATION
  Report Type: Spontaneous
  Country: US (occurrence: US)
  Receive Date: 20180606
  Receipt Date: 20180606
  Transmission Date: 20180711
  Serious: Yes (Other)
  Sender: FDA-Public Use
  Company Number: US-MYLANLABS-2018M1037095

PATIENT
  Sex: Female

DRUGS (2)
  1. RISPERIDONE. [Suspect]
     Active Substance: RISPERIDONE
     Indication: PRODUCT USED FOR UNKNOWN INDICATION
     Dosage: 4 MG, UNK
     Route: 048
     Dates: start: 2018, end: 2018
  2. RISPERIDONE TABLETS, USP [Suspect]
     Active Substance: RISPERIDONE
     Indication: PRODUCT USED FOR UNKNOWN INDICATION
     Dosage: UNK UNK, PRN
     Route: 048

REACTIONS (13)
  - Drug effect decreased [Recovering/Resolving]
  - Screaming [Recovering/Resolving]
  - Affect lability [Recovering/Resolving]
  - Insomnia [Recovering/Resolving]
  - Irritability [Recovering/Resolving]
  - Nightmare [Recovering/Resolving]
  - Aggression [Recovering/Resolving]
  - Hypomania [Recovering/Resolving]
  - Mania [Recovering/Resolving]
  - Homicidal ideation [Recovering/Resolving]
  - Crying [Recovering/Resolving]
  - Suicidal ideation [Recovering/Resolving]
  - Product substitution issue [Recovering/Resolving]
